FAERS Safety Report 19518486 (Version 1)
Quarter: 2021Q3

REPORT INFORMATION
  Report Type: Spontaneous
  Country: US (occurrence: US)
  Receive Date: 20210709
  Receipt Date: 20210709
  Transmission Date: 20211014
  Serious: Yes (Disabling)
  Sender: FDA-Public Use
  Company Number: None

PATIENT
  Age: 38 Year
  Sex: Female
  Weight: 55.35 kg

DRUGS (2)
  1. ZOLOFT [Concomitant]
     Active Substance: SERTRALINE HYDROCHLORIDE
  2. HYDROXYZINE PAM, GENERIC FOR VISTARIL [Suspect]
     Active Substance: HYDROXYZINE PAMOATE
     Indication: ANXIETY
     Dosage: ?          QUANTITY:1 CAPSULE(S);?
     Route: 048
     Dates: start: 20210707, end: 20210709

REACTIONS (6)
  - Gait inability [None]
  - Impaired work ability [None]
  - Hypotension [None]
  - Lethargy [None]
  - Consciousness fluctuating [None]
  - Palpitations [None]

NARRATIVE: CASE EVENT DATE: 20210709
